FAERS Safety Report 5516126-5 (Version None)
Quarter: 2007Q4

REPORT INFORMATION
  Report Type: 
  Country: None (occurrence: None)
  Receive Date: 20071114
  Receipt Date: 20061220
  Transmission Date: 20080405
  Serious: No
  Sender: FDA-Public Use
  Company Number: A0632080A

PATIENT
  Age: 79 Year
  Sex: Male

DRUGS (1)
  1. COMMIT [Suspect]

REACTIONS (4)
  - ANXIETY [None]
  - INTENTIONAL DRUG MISUSE [None]
  - NERVOUSNESS [None]
  - PRODUCTIVE COUGH [None]
